FAERS Safety Report 5909613-9 (Version None)
Quarter: 2008Q4

REPORT INFORMATION
  Report Type: 
  Country: None (occurrence: None)
  Receive Date: 20081001
  Receipt Date: 20080919
  Transmission Date: 20090506
  Serious: No
  Sender: FDA-Public Use
  Company Number: 2008AP002494

PATIENT
  Sex: Female

DRUGS (4)
  1. CARBAMAZEPINE [Suspect]
     Dosage: 800 MG; QD TRPL
     Route: 064
  2. TOPAMAX [Suspect]
     Dosage: 50 MG; QD TRPL
     Route: 064
  3. VALPROATE SODIUM [Suspect]
     Dosage: 2500 MG; QD TRPL
     Route: 064
  4. TOPAMAX /AUS/ (TOPIRAMATE) [Concomitant]

REACTIONS (2)
  - HYPOSPADIAS [None]
  - MATERNAL DRUGS AFFECTING FOETUS [None]
